FAERS Safety Report 16355226 (Version 2)
Quarter: 2019Q2

REPORT INFORMATION
  Report Type: Spontaneous
  Country: JP (occurrence: JP)
  Receive Date: 20190525
  Receipt Date: 20190607
  Transmission Date: 20190711
  Serious: Yes (Death, Life-Threatening, Disabling)
  Sender: FDA-Public Use
  Company Number: JP-B.I. PHARMACEUTICALS,INC./RIDGEFIELD-2019-NB-002203

PATIENT
  Age: 8 Decade
  Sex: Male

DRUGS (1)
  1. TRADIANCE [Suspect]
     Active Substance: EMPAGLIFLOZIN\LINAGLIPTIN
     Indication: TYPE 2 DIABETES MELLITUS
     Route: 048
     Dates: start: 201901, end: 20190507

REACTIONS (2)
  - Urinary tract infection [Recovered/Resolved with Sequelae]
  - Septic shock [Fatal]

NARRATIVE: CASE EVENT DATE: 20190507
